FAERS Safety Report 17431002 (Version 1)
Quarter: 2020Q1

REPORT INFORMATION
  Report Type: Report from Study
  Country: GB (occurrence: GB)
  Receive Date: 20200218
  Receipt Date: 20200218
  Transmission Date: 20200409
  Serious: Yes (Death, Life-Threatening, Hospitalization, Other)
  Sender: FDA-Public Use
  Company Number: GB-AMGEN-GBRCT2020026281

PATIENT

DRUGS (3)
  1. SODIUM FLUORIDE (18F) [Concomitant]
     Dosage: 125 MEGABECQUEREL
     Route: 042
     Dates: start: 20160726, end: 20160726
  2. ALENDRONATE [Suspect]
     Active Substance: ALENDRONATE SODIUM
     Indication: OSTEOPOROSIS
     Dosage: 70 MILLIGRAM, QWK
     Route: 048
     Dates: start: 20160913, end: 20170629
  3. DENOSUMAB [Suspect]
     Active Substance: DENOSUMAB
     Indication: OSTEOPOROSIS
     Dosage: UNK
     Route: 065

REACTIONS (2)
  - Intestinal ischaemia [Fatal]
  - Volvulus [Fatal]

NARRATIVE: CASE EVENT DATE: 20170629
